FAERS Safety Report 4326448-1 (Version None)
Quarter: 2004Q1

REPORT INFORMATION
  Report Type: 
  Country: None (occurrence: None)
  Receive Date: 20040329
  Receipt Date: 20040329
  Transmission Date: 20041129
  Serious: Yes (Hospitalization, Disabling)
  Sender: FDA-Public Use
  Company Number: None

PATIENT
  Age: 13 Year
  Sex: Female
  Weight: 47.6277 kg

DRUGS (4)
  1. EFFEXOR [Suspect]
     Indication: DEPRESSION
     Dosage: 1 DLY ORAL
     Route: 048
     Dates: start: 20030311, end: 20030729
  2. EFFEXOR [Suspect]
     Indication: OPPOSITIONAL DEFIANT DISORDER
     Dosage: 1 DLY ORAL
     Route: 048
     Dates: start: 20030311, end: 20030729
  3. REMERON [Suspect]
     Indication: DEPRESSION
     Dosage: 1 DLY ORAL
     Route: 048
     Dates: start: 20030311, end: 20030729
  4. REMERON [Suspect]
     Indication: OPPOSITIONAL DEFIANT DISORDER
     Dosage: 1 DLY ORAL
     Route: 048
     Dates: start: 20030311, end: 20030729

REACTIONS (7)
  - ABNORMAL BEHAVIOUR [None]
  - AGGRESSION [None]
  - BIPOLAR I DISORDER [None]
  - IMPRISONMENT [None]
  - MANIA [None]
  - PSYCHOTIC DISORDER [None]
  - SUICIDE ATTEMPT [None]
